FAERS Safety Report 7030241-9 (Version None)
Quarter: 2010Q4

REPORT INFORMATION
  Report Type: 
  Country: None (occurrence: None)
  Receive Date: 20101006
  Receipt Date: 20100927
  Transmission Date: 20110411
  Serious: Yes (Hospitalization)
  Sender: FDA-Public Use
  Company Number: BR-ASTRAZENECA-2010SE46053

PATIENT
  Age: 73 Year
  Sex: Female
  Weight: 75 kg

DRUGS (10)
  1. NEXIUM [Suspect]
     Indication: DYSPEPSIA
     Route: 048
     Dates: start: 20020101
  2. NEXIUM [Suspect]
     Indication: OESOPHAGEAL LESION EXCISION
     Route: 048
     Dates: start: 20020101
  3. NEXIUM [Suspect]
     Route: 048
  4. NEXIUM [Suspect]
     Route: 048
  5. ATENOLOL [Suspect]
     Indication: HYPERTENSION
     Dosage: OD
     Route: 048
     Dates: end: 19990101
  6. EUTHYROX [Concomitant]
     Route: 048
     Dates: start: 20030101
  7. LEXOTAN [Concomitant]
     Route: 048
  8. HYGROTON [Concomitant]
     Indication: HYPERTENSION
     Route: 048
     Dates: start: 20050101
  9. PROPRANOLOL [Concomitant]
     Indication: HYPERTENSION
     Route: 048
     Dates: start: 19990101
  10. SIMVASCOR [Concomitant]
     Indication: BLOOD CHOLESTEROL INCREASED
     Route: 048
     Dates: start: 20020101

REACTIONS (4)
  - BRADYCARDIA [None]
  - OSTEOARTHRITIS [None]
  - OSTEOPOROSIS [None]
  - VENOUS INSUFFICIENCY [None]
